FAERS Safety Report 19042791 (Version 1)
Quarter: 2021Q1

REPORT INFORMATION
  Report Type: Report from Study
  Country: US (occurrence: US)
  Receive Date: 20210323
  Receipt Date: 20210323
  Transmission Date: 20210420
  Serious: No
  Sender: FDA-Public Use
  Company Number: NVSC2021US064491

PATIENT
  Sex: Female

DRUGS (1)
  1. AFINITOR [Suspect]
     Active Substance: EVEROLIMUS
     Indication: ANTIBIOTIC ASSOCIATED COLITIS
     Dosage: 10 MG
     Route: 048
     Dates: start: 202102

REACTIONS (2)
  - Fatigue [Unknown]
  - Nausea [Unknown]
